FAERS Safety Report 24374880 (Version 1)
Quarter: 2024Q3

REPORT INFORMATION
  Report Type: Spontaneous
  Country: US (occurrence: US)
  Receive Date: 20240927
  Receipt Date: 20240927
  Transmission Date: 20241017
  Serious: No
  Sender: BIOMARIN
  Company Number: US-SA-SAC20240606001395

PATIENT

DRUGS (1)
  1. LARONIDASE [Suspect]
     Active Substance: LARONIDASE
     Indication: Mucopolysaccharidosis I
     Dosage: 8.7 (UNITS NOT REPORTED) QW
     Route: 042
     Dates: start: 20200521

REACTIONS (1)
  - Vascular access site discomfort [Recovered/Resolved]

NARRATIVE: CASE EVENT DATE: 20240909
